FAERS Safety Report 7481794-8 (Version None)
Quarter: 2011Q2

REPORT INFORMATION
  Report Type: 
  Country: None (occurrence: None)
  Receive Date: 20110516
  Receipt Date: 20110513
  Transmission Date: 20111010
  Serious: Yes (Death)
  Sender: FDA-Public Use
  Company Number: PHHO2011AU06659

PATIENT
  Sex: Male

DRUGS (4)
  1. SUNITINIB MALATE [Suspect]
     Indication: RENAL CELL CARCINOMA
  2. AFINITOR [Suspect]
     Indication: RENAL CELL CARCINOMA
     Route: 048
  3. RAMIPRIL [Concomitant]
     Dosage: UNK
     Dates: start: 20100101
  4. AMOXICILLIN [Concomitant]
     Indication: PROPHYLAXIS
     Dosage: UNK
     Dates: start: 20101001

REACTIONS (2)
  - NEOPLASM MALIGNANT [None]
  - CARDIAC FAILURE CONGESTIVE [None]
